FAERS Safety Report 11620543 (Version 1)
Quarter: 2015Q4

REPORT INFORMATION
  Report Type: Spontaneous
  Country: IT (occurrence: IT)
  Receive Date: 20151012
  Receipt Date: 20151012
  Transmission Date: 20160304
  Serious: Yes (Hospitalization, Other)
  Sender: FDA-Public Use
  Company Number: PHHY2015IT121732

PATIENT
  Age: 66 Year
  Sex: Female

DRUGS (1)
  1. ZOLEDRONATE [Suspect]
     Active Substance: ZOLEDRONIC ACID
     Indication: METASTASES TO BONE
     Dosage: 4 MG, QMO
     Route: 042
     Dates: start: 200909, end: 201206

REACTIONS (7)
  - Exposed bone in jaw [Recovered/Resolved]
  - Purulent discharge [Recovered/Resolved]
  - Pain in jaw [Recovered/Resolved]
  - Osteolysis [Recovered/Resolved]
  - Breast cancer metastatic [Unknown]
  - Osteonecrosis of jaw [Recovered/Resolved]
  - Paraesthesia oral [Recovered/Resolved]
